FAERS Safety Report 5447713-0 (Version None)
Quarter: 2007Q3

REPORT INFORMATION
  Report Type: 
  Country: None (occurrence: None)
  Receive Date: 20070910
  Receipt Date: 20070828
  Transmission Date: 20080115
  Serious: Yes (Other)
  Sender: FDA-Public Use
  Company Number: PHEH2007US11810

PATIENT
  Sex: Female

DRUGS (9)
  1. MIACALCIN [Suspect]
     Indication: OSTEOPOROSIS
  2. CARDIZEM CD [Concomitant]
     Dosage: 240 MG, UNK
  3. ALLEGRA [Concomitant]
     Dosage: 180 MG, UNK
  4. DILANTIN [Concomitant]
  5. PREVACID [Concomitant]
  6. VITAMIN E [Concomitant]
  7. PANCREASE MT 16 [Concomitant]
  8. LACTAID [Concomitant]
  9. K-DUR 10 [Concomitant]

REACTIONS (1)
  - CEREBROVASCULAR ACCIDENT [None]
